FAERS Safety Report 18860031 (Version 2)
Quarter: 2021Q1

REPORT INFORMATION
  Report Type: Spontaneous
  Country: US (occurrence: US)
  Receive Date: 20210208
  Receipt Date: 20210226
  Transmission Date: 20210420
  Serious: Yes (Hospitalization, Other)
  Sender: FDA-Public Use
  Company Number: US-FRESENIUS KABI-FK202101185

PATIENT
  Age: 70 Year
  Sex: Male
  Weight: 94.6 kg

DRUGS (3)
  1. FLUOROURACIL (OTHER MANUFACTURER) [Suspect]
     Active Substance: FLUOROURACIL
     Indication: CHOLANGIOCARCINOMA
     Route: 042
     Dates: start: 20210112
  2. IRINOTECAN [Suspect]
     Active Substance: IRINOTECAN
     Indication: CHOLANGIOCARCINOMA
     Dosage: 70 MG/M2,?NANOLIPOSOMAL IRINOTECAN
     Route: 042
     Dates: start: 20210112
  3. CALCIUM FOLINATE [Suspect]
     Active Substance: LEUCOVORIN CALCIUM
     Indication: CHOLANGIOCARCINOMA
     Route: 042
     Dates: start: 20210112

REACTIONS (5)
  - Urinary tract infection [Recovering/Resolving]
  - Bacteraemia [Recovered/Resolved]
  - Cholestasis [Recovered/Resolved]
  - Neutropenia [Recovering/Resolving]
  - Pancytopenia [Recovered/Resolved]

NARRATIVE: CASE EVENT DATE: 20210118
